FAERS Safety Report 9351359 (Version 1)
Quarter: 2013Q2

REPORT INFORMATION
  Report Type: Spontaneous
  Country: US (occurrence: US)
  Receive Date: 20130617
  Receipt Date: 20130617
  Transmission Date: 20140414
  Serious: No
  Sender: FDA-Public Use
  Company Number: US-UPSHER-SMITH LABORATORIES, INC.-13001565

PATIENT
  Age: 81 Year
  Sex: Female

DRUGS (6)
  1. PREVALITE [Suspect]
     Indication: IRRITABLE BOWEL SYNDROME
     Dosage: 1 TEASPOONFUL, QD
     Route: 048
     Dates: start: 201211, end: 201304
  2. PREVALITE [Suspect]
     Dosage: 1/2 TEASPOONFUL, QD
     Route: 048
     Dates: start: 201304
  3. NORVASC [Concomitant]
     Dosage: UNK
  4. BENICAR HCT [Concomitant]
     Dosage: UNK
  5. CRESTOR                            /01588601/ [Concomitant]
     Dosage: UNK
  6. VITAMINS NOS [Concomitant]
     Dosage: UNK

REACTIONS (5)
  - Decreased appetite [Recovered/Resolved]
  - Constipation [Recovered/Resolved]
  - Dyspepsia [Not Recovered/Not Resolved]
  - Depression [Not Recovered/Not Resolved]
  - Anxiety [Not Recovered/Not Resolved]
